FAERS Safety Report 9202070 (Version 1)
Quarter: 2013Q2

REPORT INFORMATION
  Report Type: Spontaneous
  Country: GB (occurrence: GB)
  Receive Date: 20130401
  Receipt Date: 20130401
  Transmission Date: 20140414
  Serious: Yes (Death, Hospitalization, Other)
  Sender: FDA-Public Use
  Company Number: GB-PFIZER INC-2013099522

PATIENT
  Age: 62 Year
  Sex: Male

DRUGS (1)
  1. VENLAFAXINE HYDROCHLORIDE [Suspect]
     Indication: DEPRESSION
     Dosage: UNK
     Dates: start: 200007

REACTIONS (11)
  - Lung infiltration [Fatal]
  - Multi-organ failure [Fatal]
  - Cardiac failure [Fatal]
  - Dyspnoea [Unknown]
  - Bradycardia [Unknown]
  - C-reactive protein increased [Unknown]
  - Hypotension [Unknown]
  - Oxygen saturation decreased [Unknown]
  - Dyspnoea exertional [Unknown]
  - Pyrexia [Unknown]
  - Cough [Unknown]
